FAERS Safety Report 5403042-2 (Version None)
Quarter: 2007Q3

REPORT INFORMATION
  Report Type: 
  Country: None (occurrence: None)
  Receive Date: 20070801
  Receipt Date: 20070720
  Transmission Date: 20080115
  Serious: Yes (Death)
  Sender: FDA-Public Use
  Company Number: JP-ELI_LILLY_AND_COMPANY-JP200702005816

PATIENT
  Age: 28 Year
  Sex: Female
  Weight: 57.4 kg

DRUGS (13)
  1. TADALAFIL [Suspect]
     Indication: PULMONARY HYPERTENSION
     Dosage: 20 MG, EACH MORNING
     Route: 048
     Dates: start: 20070215, end: 20070301
  2. PROCYLIN [Concomitant]
     Indication: PULMONARY HYPERTENSION
     Dosage: 160 UG, DAILY (1/D)
     Route: 048
     Dates: start: 20020225, end: 20070228
  3. SELBEX [Concomitant]
     Indication: GASTRITIS PROPHYLAXIS
     Dosage: 150 MG, DAILY (1/D)
     Route: 048
     Dates: start: 20020221, end: 20070228
  4. WARFARIN POTASSIUM [Concomitant]
     Indication: PULMONARY HYPERTENSION
     Dosage: 4.5 MG, DAILY (1/D)
     Route: 048
     Dates: start: 20060704, end: 20070228
  5. ONEALFA [Concomitant]
     Indication: OSTEOPOROSIS
     Dosage: 1 UG, DAILY (1/D)
     Route: 048
     Dates: start: 20020905, end: 20070228
  6. MEVALOTIN /JPN/ [Concomitant]
     Indication: HYPERLIPIDAEMIA
     Dosage: 10 MG, DAILY (1/D)
     Route: 048
     Dates: start: 20020905, end: 20070228
  7. BONALON [Concomitant]
     Indication: OSTEOPOROSIS
     Dosage: 5 MG, DAILY (1/D)
     Route: 048
     Dates: start: 20030515, end: 20070228
  8. PREDNISOLONE [Concomitant]
     Indication: SYSTEMIC LUPUS ERYTHEMATOSUS
     Dosage: 10 MG, DAILY (1/D)
     Route: 048
     Dates: start: 20031106, end: 20070302
  9. PREDNISOLONE [Concomitant]
     Indication: SYSTEMIC LUPUS ERYTHEMATOSUS
     Dosage: 1 MG, DAILY (1/D)
     Route: 048
     Dates: start: 20060209, end: 20070302
  10. TRACLEER [Concomitant]
     Indication: PULMONARY HYPERTENSION
     Dosage: 250 MG, DAILY (1/D)
     Route: 048
     Dates: start: 20050809, end: 20070303
  11. ACECOL [Concomitant]
     Indication: PULMONARY HYPERTENSION
     Dosage: 2 MG, DAILY (1/D)
     Route: 048
     Dates: start: 20020827, end: 20070228
  12. AMLODIPINE [Concomitant]
     Indication: PULMONARY HYPERTENSION
     Dosage: 5 MG, DAILY (1/D)
     Route: 048
     Dates: start: 20050727, end: 20070228
  13. BAKTAR [Concomitant]
     Indication: INFECTION PROPHYLAXIS
     Dosage: 1 D/F, DAILY (1/D)
     Route: 048
     Dates: start: 20020907, end: 20070228

REACTIONS (6)
  - CARDIO-RESPIRATORY ARREST [None]
  - HAEMORRHAGIC DIATHESIS [None]
  - HISTIOCYTOSIS HAEMATOPHAGIC [None]
  - INFECTION [None]
  - PLEURAL EFFUSION [None]
  - PULMONARY ALVEOLAR HAEMORRHAGE [None]
